FAERS Safety Report 7711718-7 (Version None)
Quarter: 2011Q3

REPORT INFORMATION
  Report Type: 
  Country: None (occurrence: None)
  Receive Date: 20110822
  Receipt Date: 20110813
  Transmission Date: 20111222
  Serious: Yes (Hospitalization, Other)
  Sender: FDA-Public Use
  Company Number: 2011SP032662

PATIENT
  Age: 61 Year
  Sex: Female

DRUGS (4)
  1. TIBOLONE [Concomitant]
  2. TETRAZEPAM [Concomitant]
  3. MIRTAZAPINE [Suspect]
     Indication: DEPRESSION
  4. ALPRAZOLAM [Concomitant]

REACTIONS (5)
  - PYREXIA [None]
  - SUPERIOR VENA CAVA SYNDROME [None]
  - TOXICITY TO VARIOUS AGENTS [None]
  - MEDIASTINAL FIBROSIS [None]
  - PLEURAL EFFUSION [None]
